FAERS Safety Report 5663620-2 (Version None)
Quarter: 2008Q1

REPORT INFORMATION
  Report Type: 
  Country: None (occurrence: None)
  Receive Date: 20080307
  Receipt Date: 20080222
  Transmission Date: 20080703
  Serious: Yes (Other)
  Sender: FDA-Public Use
  Company Number: 2008S1003038

PATIENT
  Age: 60 Year
  Sex: Male

DRUGS (3)
  1. AMLODIPINE [Suspect]
     Indication: DRUG USE FOR UNKNOWN INDICATION
     Dosage: 100 MG; ORAL
     Route: 048
     Dates: start: 20080221, end: 20080221
  2. ALLOPURINOL [Suspect]
     Indication: DRUG USE FOR UNKNOWN INDICATION
     Dosage: 6000 MG; ORAL
     Route: 048
     Dates: start: 20080221, end: 20080221
  3. OLMESARTAN MEDOXOMIL [Suspect]
     Indication: DRUG USE FOR UNKNOWN INDICATION
     Dosage: 800 MG; ORAL
     Route: 048
     Dates: start: 20080221, end: 20080221

REACTIONS (1)
  - MULTIPLE DRUG OVERDOSE [None]
